FAERS Safety Report 18601038 (Version 1)
Quarter: 2020Q4

REPORT INFORMATION
  Report Type: Spontaneous
  Country: US (occurrence: US)
  Receive Date: 20201210
  Receipt Date: 20201210
  Transmission Date: 20210114
  Serious: Yes (Hospitalization)
  Sender: FDA-Public Use
  Company Number: None

PATIENT
  Age: 45 Year
  Sex: Male

DRUGS (17)
  1. XIFAXAN [Suspect]
     Active Substance: RIFAXIMIN
     Indication: VASCULAR GRAFT
     Route: 048
     Dates: start: 20200207
  2. ONDANSETRON [Concomitant]
     Active Substance: ONDANSETRON
  3. VITAMIN D3 [Concomitant]
     Active Substance: CHOLECALCIFEROL
  4. ENTYVIO [Suspect]
     Active Substance: VEDOLIZUMAB
     Dosage: ?          OTHER FREQUENCY:Q4WKS;?
     Route: 042
     Dates: start: 20200214
  5. ELIQUIS [Concomitant]
     Active Substance: APIXABAN
  6. MULTIVITAMIN [Concomitant]
     Active Substance: VITAMINS
  7. CALCIUM [Concomitant]
     Active Substance: CALCIUM
  8. GENOGRAF [Concomitant]
  9. IRON [Concomitant]
     Active Substance: IRON
  10. URSODIOL. [Concomitant]
     Active Substance: URSODIOL
  11. VIMPAT [Concomitant]
     Active Substance: LACOSAMIDE
  12. NADOLOL. [Concomitant]
     Active Substance: NADOLOL
  13. VITAMIN C [Concomitant]
     Active Substance: ASCORBIC ACID
  14. LEVETRACETA [Concomitant]
  15. ALENDRONATE [Concomitant]
     Active Substance: ALENDRONATE SODIUM
  16. LORAZEPAM. [Concomitant]
     Active Substance: LORAZEPAM
  17. PANTOPRAZOLE [Concomitant]
     Active Substance: PANTOPRAZOLE

REACTIONS (3)
  - Sepsis [None]
  - Therapy interrupted [None]
  - Arthritis infective [None]

NARRATIVE: CASE EVENT DATE: 20201009
